FAERS Safety Report 21178323 (Version 2)
Quarter: 2022Q3

REPORT INFORMATION
  Report Type: Report from Study
  Country: FR (occurrence: FR)
  Receive Date: 20220805
  Receipt Date: 20220914
  Transmission Date: 20221027
  Serious: Yes (Hospitalization, Other)
  Sender: FDA-Public Use
  Company Number: FR-GILEAD-2022-0592465

PATIENT
  Age: 48 Year
  Sex: Female
  Weight: 92 kg

DRUGS (1)
  1. SACITUZUMAB GOVITECAN [Suspect]
     Active Substance: SACITUZUMAB GOVITECAN
     Indication: Triple negative breast cancer
     Dosage: 10 MG/KG C1D1 AND C1D8, DISCONTINUED ON 02-JUN-2022
     Route: 042
     Dates: start: 20220518, end: 20220527

REACTIONS (3)
  - Febrile bone marrow aplasia [Unknown]
  - Staphylococcal sepsis [Unknown]
  - General physical health deterioration [Unknown]

NARRATIVE: CASE EVENT DATE: 20220602
